FAERS Safety Report 12654699 (Version 1)
Quarter: 2016Q3

REPORT INFORMATION
  Report Type: Spontaneous
  Country: US (occurrence: None)
  Receive Date: 20160815
  Receipt Date: 20160815
  Transmission Date: 20161109
  Serious: Yes (Other)
  Sender: FDA-Public Use
  Company Number: None

PATIENT
  Age: 65 Year
  Sex: Female
  Weight: 74.84 kg

DRUGS (21)
  1. BENZONATATE. [Suspect]
     Active Substance: BENZONATATE
     Indication: BRONCHITIS
     Route: 048
     Dates: start: 20160714
  2. FAMOTIDINE. [Concomitant]
     Active Substance: FAMOTIDINE
  3. MULTIVITAMIN [Concomitant]
     Active Substance: VITAMINS
  4. LEVOTHYROXINE. [Concomitant]
     Active Substance: LEVOTHYROXINE
  5. CLARITIN [Concomitant]
     Active Substance: LORATADINE
  6. MILK THISTLE [Concomitant]
     Active Substance: MILK THISTLE
  7. B-100 [Concomitant]
  8. VALERIAN [Concomitant]
     Active Substance: VALERIAN
  9. D [Concomitant]
  10. EMERGENCY INHALER [Concomitant]
     Active Substance: UNSPECIFIED INGREDIENT
  11. ACIDOPHILUS [Concomitant]
     Active Substance: LACTOBACILLUS ACIDOPHILUS
  12. ALEVE [Concomitant]
     Active Substance: NAPROXEN SODIUM
  13. MAGNESIUM [Concomitant]
     Active Substance: MAGNESIUM
  14. FLEXERIL [Concomitant]
     Active Substance: CYCLOBENZAPRINE HYDROCHLORIDE
  15. FISH OIL [Concomitant]
     Active Substance: FISH OIL
  16. PROMETHAZINE [Concomitant]
     Active Substance: PROMETHAZINE\PROMETHAZINE HYDROCHLORIDE
  17. LECITHIN [Concomitant]
     Active Substance: LECITHIN
  18. COENZYME Q10 [Concomitant]
     Active Substance: UBIDECARENONE
  19. C [Concomitant]
  20. MINERAL [Concomitant]
  21. ZINC [Concomitant]
     Active Substance: ZINC\ZINC CHLORIDE

REACTIONS (10)
  - Swelling face [None]
  - Dry skin [None]
  - Peripheral swelling [None]
  - Mouth swelling [None]
  - Hypoaesthesia oral [None]
  - Rash erythematous [None]
  - Muscular weakness [None]
  - Paraesthesia oral [None]
  - Arthropathy [None]
  - Swollen tongue [None]

NARRATIVE: CASE EVENT DATE: 20160717
